FAERS Safety Report 9861939 (Version 2)
Quarter: 2014Q1

REPORT INFORMATION
  Report Type: Spontaneous
  Country: TT (occurrence: TT)
  Receive Date: 20140203
  Receipt Date: 20140203
  Transmission Date: 20141002
  Serious: Yes (Other)
  Sender: FDA-Public Use
  Company Number: TT-ROCHE-1332201

PATIENT
  Sex: Female
  Weight: 61.74 kg

DRUGS (3)
  1. TAMIFLU [Suspect]
     Indication: PRODUCT USED FOR UNKNOWN INDICATION
     Route: 048
     Dates: start: 20090812, end: 20090816
  2. PARACETAMOL [Concomitant]
     Route: 048
     Dates: start: 20090812, end: 20090816
  3. DIMENHYDRINATE [Concomitant]
     Route: 048
     Dates: start: 20090812, end: 20090816

REACTIONS (4)
  - Retinal detachment [Recovered/Resolved]
  - Iritis [Recovered/Resolved]
  - Cataract [Recovered/Resolved]
  - Cataract [Recovered/Resolved]
